FAERS Safety Report 10086271 (Version 1)
Quarter: 2014Q2

REPORT INFORMATION
  Report Type: Spontaneous
  Country: US (occurrence: US)
  Receive Date: 20140418
  Receipt Date: 20140418
  Transmission Date: 20141212
  Serious: No
  Sender: FDA-Public Use
  Company Number: US-ENDO PHARMACEUTICALS INC.-DIAZ20140003

PATIENT
  Sex: Male

DRUGS (1)
  1. DIAZEPAM 5MG [Suspect]
     Indication: ANXIETY
     Route: 048

REACTIONS (1)
  - Drug dependence [Unknown]
